FAERS Safety Report 5337630-9 (Version None)
Quarter: 2007Q2

REPORT INFORMATION
  Report Type: 
  Country: None (occurrence: None)
  Receive Date: 20070309
  Receipt Date: 20061027
  Transmission Date: 20071010
  Serious: Yes (Other)
  Sender: FDA-Public Use
  Company Number: US200610005197

PATIENT
  Age: 62 Year
  Sex: Male
  Weight: 97.1 kg

DRUGS (4)
  1. GEMZAR [Suspect]
     Indication: BLADDER CANCER STAGE IV
     Dosage: 2120 MG, INTRAVENOUS
     Route: 042
     Dates: start: 20060515
  2. CARBOPLATIN [Concomitant]
  3. ZOFRAN [Concomitant]
  4. DECADRON [Concomitant]

REACTIONS (4)
  - BLOOD CREATININE INCREASED [None]
  - HAEMATOCRIT DECREASED [None]
  - METASTASES TO LUNG [None]
  - RED BLOOD CELL COUNT DECREASED [None]
